FAERS Safety Report 4555850-8 (Version None)
Quarter: 2005Q1

REPORT INFORMATION
  Report Type: 
  Country: None (occurrence: None)
  Receive Date: 20050118
  Receipt Date: 20041130
  Transmission Date: 20050727
  Serious: No
  Sender: FDA-Public Use
  Company Number: A03200404019

PATIENT
  Age: 69 Year
  Sex: Male

DRUGS (2)
  1. UROXATRAL [Suspect]
     Indication: BENIGN PROSTATIC HYPERPLASIA
     Dosage: 10 MG OD - ORAL
     Route: 048
     Dates: start: 20041125, end: 20041125
  2. DULOXETINE HCL [Concomitant]

REACTIONS (1)
  - SENSITIVITY OF TEETH [None]
